FAERS Safety Report 8978100 (Version 1)
Quarter: 2012Q4

REPORT INFORMATION
  Report Type: 
  Country: CN (occurrence: CN)
  Receive Date: 20121220
  Receipt Date: 20121220
  Transmission Date: 20130627
  Serious: Yes (Other)
  Sender: FDA-Public Use
  Company Number: PHHY2012CN117311

PATIENT
  Age: 33 Year
  Sex: Female
  Weight: 50 kg

DRUGS (1)
  1. BROMOCRIPTINE [Suspect]
     Indication: MENSTRUATION IRREGULAR
     Dosage: 2.5 mg, thrice daily
     Route: 048
     Dates: start: 20090527, end: 20090527

REACTIONS (5)
  - Erectile dysfunction [Recovered/Resolved]
  - Decreased activity [Recovered/Resolved]
  - Malaise [Recovered/Resolved]
  - Nausea [Recovered/Resolved]
  - Vomiting [Recovered/Resolved]
